FAERS Safety Report 10698752 (Version 1)
Quarter: 2014Q4

REPORT INFORMATION
  Report Type: Spontaneous
  Country: US (occurrence: None)
  Receive Date: 20141223
  Receipt Date: 20141223
  Transmission Date: 20150529
  Serious: No
  Sender: FDA-Public Use
  Company Number: 1000070400

PATIENT
  Age: 70 Year
  Sex: Female

DRUGS (6)
  1. LINZESS [Suspect]
     Active Substance: LINACLOTIDE
     Indication: IRRITABLE BOWEL SYNDROME
     Route: 048
     Dates: start: 201408
  2. CALCIUM [Concomitant]
     Active Substance: CALCIUM
  3. ASPIRIN (ACETYLSALICYLIC ACID) [Concomitant]
     Active Substance: ASPIRIN
  4. DILACOR (DILTIAZEM) [Concomitant]
  5. TRENTAL (PENTOXIFYLLINE) [Concomitant]
  6. INSULIN [Concomitant]
     Active Substance: INSULIN NOS

REACTIONS (2)
  - Abdominal distension [None]
  - Drug ineffective [None]

NARRATIVE: CASE EVENT DATE: 201408
